FAERS Safety Report 9466452 (Version 1)
Quarter: 2013Q3

REPORT INFORMATION
  Report Type: Spontaneous
  Country: US (occurrence: US)
  Receive Date: 20130820
  Receipt Date: 20130820
  Transmission Date: 20140515
  Serious: No
  Sender: FDA-Public Use
  Company Number: US-009507513-1308USA005713

PATIENT
  Age: 67 Year
  Sex: Female
  Weight: 66.21 kg

DRUGS (3)
  1. MIRALAX [Suspect]
     Indication: DIVERTICULITIS
     Dosage: 17 G, QD
     Route: 048
     Dates: start: 2003
  2. MIRALAX [Suspect]
     Indication: MEDICAL OBSERVATION
  3. SYNTHROID [Concomitant]
     Indication: THYROID DISORDER
     Dosage: UNK, UNKNOWN

REACTIONS (3)
  - Incorrect drug administration duration [Unknown]
  - Off label use [Unknown]
  - Product quality issue [Unknown]
